FAERS Safety Report 17963262 (Version 1)
Quarter: 2020Q2

REPORT INFORMATION
  Report Type: Spontaneous
  Country: CN (occurrence: CN)
  Receive Date: 20200630
  Receipt Date: 20200630
  Transmission Date: 20200714
  Serious: No
  Sender: FDA-Public Use
  Company Number: CN-ASTRAZENECA-2020SE77276

PATIENT
  Age: 18661 Day
  Sex: Female
  Weight: 60 kg

DRUGS (2)
  1. METFORMIN HYDROCHLORIDE. [Concomitant]
     Active Substance: METFORMIN HYDROCHLORIDE
     Indication: TYPE 2 DIABETES MELLITUS
     Dosage: 0.5G TID
     Route: 048
     Dates: start: 20200415, end: 20200605
  2. FORXIGA [Suspect]
     Active Substance: DAPAGLIFLOZIN
     Indication: TYPE 2 DIABETES MELLITUS
     Route: 048
     Dates: start: 20200415, end: 20200605

REACTIONS (4)
  - Polydipsia [Unknown]
  - Weight decreased [Unknown]
  - Ketosis [Unknown]
  - Palpitations [Unknown]

NARRATIVE: CASE EVENT DATE: 20200605
